FAERS Safety Report 10388753 (Version 1)
Quarter: 2014Q1

REPORT INFORMATION
  Report Type: Spontaneous
  Country: US (occurrence: None)
  Receive Date: 20140306
  Receipt Date: 20140306
  Transmission Date: 20141002
  Serious: Yes (Life-Threatening, Hospitalization)
  Sender: FDA-Public Use
  Company Number: 163-21880-13123880

PATIENT
  Age: 79 Year
  Sex: Female

DRUGS (9)
  1. REVLIMID (LENALIDOMIDE) (25 MILLIGRAM, CAPSULES) [Suspect]
     Indication: PLASMA CELL MYELOMA
     Dosage: 18.75MG, 21 IN 28 D, PO
     Route: 048
     Dates: start: 201309
  2. DEXAMETHASONE (DEXAMETHASONE) [Suspect]
     Indication: PRODUCT USED FOR UNKNOWN INDICATION
  3. ATENOLOL [Concomitant]
  4. DOXAZOSIN [Concomitant]
  5. FISH OIL [Concomitant]
  6. METFORMIN [Concomitant]
  7. NIFEDIPINE [Concomitant]
  8. ASPIRIN (ACETYLSALICYLIC ACID) [Concomitant]
  9. WARFARIN [Concomitant]

REACTIONS (1)
  - Pulmonary thrombosis [None]
